FAERS Safety Report 5646180-1 (Version None)
Quarter: 2008Q1

REPORT INFORMATION
  Report Type: 
  Country: None (occurrence: None)
  Receive Date: 20080229
  Receipt Date: 20080219
  Transmission Date: 20080703
  Serious: Yes (Other)
  Sender: FDA-Public Use
  Company Number: US-PFIZER INC-2008017686

PATIENT
  Sex: Female

DRUGS (12)
  1. LYRICA [Suspect]
     Indication: FIBROMYALGIA
  2. ALPRAZOLAM [Suspect]
     Indication: SLEEP DISORDER
  3. KLONOPIN [Suspect]
     Indication: SLEEP DISORDER
     Dosage: DAILY DOSE:3MG
  4. SYNTHROID [Concomitant]
  5. CENESTIN [Concomitant]
  6. ACIPHEX [Concomitant]
  7. ZOCOR [Concomitant]
  8. SOMA [Concomitant]
  9. NORCO [Concomitant]
     Dosage: TEXT:10/325 MG.
  10. FLEXERIL [Concomitant]
  11. ALL OTHER THERAPEUTIC PRODUCTS [Concomitant]
  12. PERCOCET [Concomitant]
     Dosage: TEXT:10/325 MG.

REACTIONS (12)
  - ABASIA [None]
  - ABNORMAL BEHAVIOUR [None]
  - ACTIVITIES OF DAILY LIVING IMPAIRED [None]
  - AMNESIA [None]
  - BACK PAIN [None]
  - DRUG WITHDRAWAL SYNDROME [None]
  - GAIT DISTURBANCE [None]
  - HEADACHE [None]
  - MEMORY IMPAIRMENT [None]
  - PAIN [None]
  - PAIN IN EXTREMITY [None]
  - WEIGHT INCREASED [None]
